APPROVED DRUG PRODUCT: JUNEL FE 1/20
Active Ingredient: ETHINYL ESTRADIOL; NORETHINDRONE ACETATE
Strength: 0.02MG;1MG
Dosage Form/Route: TABLET;ORAL-28
Application: A076081 | Product #001 | TE Code: AB
Applicant: BARR LABORATORIES INC
Approved: Sep 18, 2003 | RLD: No | RS: No | Type: RX